FAERS Safety Report 8176021-2 (Version None)
Quarter: 2012Q1

REPORT INFORMATION
  Report Type: 
  Country: None (occurrence: None)
  Receive Date: 20120301
  Receipt Date: 20120222
  Transmission Date: 20120608
  Serious: Yes (Death, Hospitalization)
  Sender: FDA-Public Use
  Company Number: US-CELGENEUS-163-21880-12022458

PATIENT
  Sex: Female

DRUGS (10)
  1. REVLIMID [Suspect]
     Dosage: 50 MILLIGRAM
     Route: 048
     Dates: start: 20120120, end: 20120128
  2. CALCIUM CARBONATE [Concomitant]
     Route: 065
  3. ZOFRAN [Concomitant]
     Indication: NAUSEA
     Dosage: 4 MILLIGRAM
     Route: 048
  4. SYNTHROID [Concomitant]
     Dosage: 75 MICROGRAM
     Route: 065
  5. VIDAZA [Suspect]
     Dosage: 101 MILLIGRAM
     Route: 058
     Dates: start: 20120113, end: 20120119
  6. MULTI-VITAMIN [Concomitant]
     Dosage: 1 TABLET
     Route: 048
  7. VITAMIN D [Concomitant]
     Indication: NAUSEA
     Dosage: 1200 MILLIGRAM
     Route: 048
  8. PLATELETS [Concomitant]
     Route: 041
  9. PLATELETS [Concomitant]
     Route: 041
     Dates: start: 20120101
  10. IBUPROFEN [Concomitant]
     Dosage: 200 MILLIGRAM
     Route: 065

REACTIONS (2)
  - GLIOBLASTOMA [None]
  - CARDIO-RESPIRATORY ARREST [None]
